FAERS Safety Report 4958284-7 (Version None)
Quarter: 2006Q1

REPORT INFORMATION
  Report Type: 
  Country: None (occurrence: None)
  Receive Date: 20060330
  Receipt Date: 20060322
  Transmission Date: 20060701
  Serious: Yes (Other)
  Sender: FDA-Public Use
  Company Number: FR-AVENTIS-200611085FR

PATIENT
  Age: 73 Year
  Sex: Female
  Weight: 90 kg

DRUGS (12)
  1. LOVENOX [Suspect]
     Indication: THROMBOSIS PROPHYLAXIS
     Route: 058
     Dates: end: 20060313
  2. LOVENOX [Suspect]
     Route: 058
     Dates: start: 20060314, end: 20060319
  3. LOVENOX [Suspect]
     Route: 058
     Dates: start: 20060320
  4. CORDARONE [Concomitant]
     Indication: ARRHYTHMIA
  5. PREVISCAN [Concomitant]
     Route: 048
  6. PREVISCAN [Concomitant]
     Route: 048
     Dates: start: 20060320
  7. TRIATEC [Concomitant]
     Route: 048
  8. TAHOR [Concomitant]
     Route: 048
  9. PERFALGAN [Concomitant]
     Route: 042
     Dates: end: 20060318
  10. MORPHINE [Concomitant]
     Dates: end: 20060318
  11. DAFALGAN [Concomitant]
     Route: 048
     Dates: start: 20060318
  12. SOLU-MEDROL [Concomitant]
     Dates: start: 20060318

REACTIONS (2)
  - ANAEMIA [None]
  - THROMBOCYTOPENIA [None]
